FAERS Safety Report 7759181-4 (Version None)
Quarter: 2011Q3

REPORT INFORMATION
  Report Type: 
  Country: None (occurrence: None)
  Receive Date: 20110919
  Receipt Date: 20110915
  Transmission Date: 20111222
  Serious: Yes (Death, Other)
  Sender: FDA-Public Use
  Company Number: PHHY2011CA81054

PATIENT
  Sex: Male

DRUGS (1)
  1. CLOZAPINE [Suspect]
     Indication: SCHIZOPHRENIA
     Dates: start: 20010919, end: 20110912

REACTIONS (5)
  - BRONCHOSPASM [None]
  - DEATH [None]
  - LUNG DISORDER [None]
  - DYSPNOEA [None]
  - OVERWEIGHT [None]
